FAERS Safety Report 7599536-4 (Version None)
Quarter: 2011Q3

REPORT INFORMATION
  Report Type: 
  Country: None (occurrence: None)
  Receive Date: 20110711
  Receipt Date: 20110627
  Transmission Date: 20111222
  Serious: Yes (Hospitalization)
  Sender: FDA-Public Use
  Company Number: US-BAYER-2011-043816

PATIENT
  Age: 55 Year
  Sex: Male
  Weight: 109.1 kg

DRUGS (4)
  1. SORAFENIB (RAF KINASE INHIBITOR) [Suspect]
     Indication: HEPATIC NEOPLASM MALIGNANT
     Dosage: 400 MG, BID
     Route: 048
     Dates: start: 20100208, end: 20100408
  2. EVEROLIMUS [Suspect]
     Indication: HEPATIC NEOPLASM MALIGNANT
     Dosage: 2.5 MG, QD
     Route: 048
     Dates: start: 20100208, end: 20100408
  3. OXYCONTIN [Concomitant]
  4. DOCUSATE SODIUM [Concomitant]

REACTIONS (3)
  - ABDOMINAL PAIN [None]
  - VOMITING [None]
  - SMALL INTESTINAL OBSTRUCTION [None]
